FAERS Safety Report 16596394 (Version 1)
Quarter: 2019Q3

REPORT INFORMATION
  Report Type: Spontaneous
  Country: CN (occurrence: CN)
  Receive Date: 20190719
  Receipt Date: 20190719
  Transmission Date: 20191004
  Serious: Yes (Other)
  Sender: FDA-Public Use
  Company Number: CN-AMERIGEN PHARMACEUTICALS, INC-2019AMG000030

PATIENT

DRUGS (4)
  1. CAPECITABINE. [Suspect]
     Active Substance: CAPECITABINE
     Indication: METASTATIC CARCINOID TUMOUR
     Dosage: 750 MG/M2, BID, DAYS 1-14 EVERY 28 DAYS  (AT LEAST THREE CYCLES)
     Route: 048
  2. TEMOZOLOMIDE UNKNOWN [Suspect]
     Active Substance: TEMOZOLOMIDE
     Indication: METASTATIC CARCINOID TUMOUR
     Dosage: 200 MG/M2, OD, ON DAYS 10-14 EVERY 28 DAYS (AT LEAST THREE CYCLES)
     Route: 048
  3. VITAMIN B6 [Concomitant]
     Active Substance: PYRIDOXINE HYDROCHLORIDE
     Indication: PROPHYLAXIS
     Dosage: 50 MG, TID, DAILY ON DAYS 1-14
     Route: 048
  4. ONDANSETRON [Concomitant]
     Active Substance: ONDANSETRON
     Indication: GASTROINTESTINAL DISORDER PROPHYLAXIS
     Dosage: 8 MG, OD, BEFORE TEMOZOLOMIDE
     Route: 048

REACTIONS (2)
  - Product use in unapproved indication [Unknown]
  - Disease progression [Unknown]
